FAERS Safety Report 21845851 (Version 1)
Quarter: 2023Q1

REPORT INFORMATION
  Report Type: Spontaneous
  Country: FR (occurrence: FR)
  Receive Date: 20230111
  Receipt Date: 20230111
  Transmission Date: 20230417
  Serious: Yes (Other)
  Sender: FDA-Public Use
  Company Number: FR-AFSSAPS-TS20222707

PATIENT
  Age: 68 Year
  Sex: Male
  Weight: 90 kg

DRUGS (4)
  1. CETIRIZINE HYDROCHLORIDE [Suspect]
     Active Substance: CETIRIZINE HYDROCHLORIDE
     Indication: Premedication
     Dosage: 10 MILLIGRAM, ONE TOTAL
     Route: 048
     Dates: start: 20221108, end: 20221108
  2. DIAMOX SEQUELS [Suspect]
     Active Substance: ACETAZOLAMIDE
     Indication: Chemotherapy side effect prophylaxis
     Dosage: 250 MILLIGRAM, ONCE A DAY, LYOPHILISATE FOR SOLUTION FOR INJECTION OR INFUSION
     Route: 042
     Dates: start: 20221108, end: 20221111
  3. LEUCOVORIN CALCIUM [Suspect]
     Active Substance: LEUCOVORIN CALCIUM
     Indication: Chemotherapy side effect prophylaxis
     Dosage: 25 MILLIGRAM, FOUR TIMES/DAY
     Route: 042
     Dates: start: 20221109, end: 20221111
  4. METHOTREXATE (METHOTREXATE SODIUM) [Suspect]
     Active Substance: METHOTREXATE SODIUM
     Indication: Central nervous system lymphoma
     Dosage: 1500 MILLIGRAM, ONE TOTAL
     Route: 042
     Dates: start: 20221108, end: 20221108

REACTIONS (1)
  - Hepatocellular injury [Recovering/Resolving]

NARRATIVE: CASE EVENT DATE: 20221110
